FAERS Safety Report 18251401 (Version 3)
Quarter: 2020Q4

REPORT INFORMATION
  Report Type: Spontaneous
  Country: DE (occurrence: DE)
  Receive Date: 20200910
  Receipt Date: 20201015
  Transmission Date: 20210113
  Serious: Yes (Death, Hospitalization)
  Sender: FDA-Public Use
  Company Number: NVSC2020DE245503

PATIENT
  Age: 43 Year
  Sex: Male
  Weight: 71 kg

DRUGS (2)
  1. VARGATEF [Suspect]
     Active Substance: NINTEDANIB
     Indication: LUNG ADENOCARCINOMA
     Dosage: 200 MG, Q12H
     Route: 065
     Dates: start: 20200709, end: 20200805
  2. DOCETAXEL. [Suspect]
     Active Substance: DOCETAXEL
     Indication: LUNG ADENOCARCINOMA
     Dosage: 75 MG/M2, QD (FORM OF ADMIN.:LIQUID DAILY DOSE OF DOCETAXEL: 75 MG/M2 BODY SURFACE AREA)
     Route: 065
     Dates: start: 20200708

REACTIONS (2)
  - Pneumonia [Fatal]
  - Diarrhoea [Recovered/Resolved]

NARRATIVE: CASE EVENT DATE: 20200715
